FAERS Safety Report 10057506 (Version 1)
Quarter: 2014Q2

REPORT INFORMATION
  Report Type: Spontaneous
  Country: CO (occurrence: CO)
  Receive Date: 20140403
  Receipt Date: 20140403
  Transmission Date: 20141212
  Serious: Yes (Other)
  Sender: FDA-Public Use
  Company Number: CO-VERTEX PHARMACEUTICALS INC-2014-001753

PATIENT
  Age: 62 Year
  Sex: Male

DRUGS (3)
  1. INCIVO [Suspect]
     Indication: HEPATITIS C
     Dosage: 375 MG, BID
     Route: 048
     Dates: start: 20131226, end: 20140320
  2. RIBAVIRIN [Concomitant]
     Indication: HEPATITIS C
     Dosage: 200 MG, 5 TIMES A DAY
     Route: 048
     Dates: start: 20131226
  3. PEGINTERFERON ALFA 2A [Concomitant]
     Indication: HEPATITIS C
     Route: 058
     Dates: start: 20131226

REACTIONS (3)
  - Neutropenia [Recovering/Resolving]
  - Haemoglobin decreased [Recovering/Resolving]
  - Anaemia [Recovering/Resolving]
